FAERS Safety Report 11116351 (Version 1)
Quarter: 2015Q2

REPORT INFORMATION
  Report Type: Spontaneous
  Country: US (occurrence: US)
  Receive Date: 20150515
  Receipt Date: 20150515
  Transmission Date: 20150821
  Serious: Yes (Life-Threatening, Hospitalization)
  Sender: FDA-Public Use
  Company Number: US-BRISTOL-MYERS SQUIBB COMPANY-BMS-2015-029716

PATIENT
  Age: 71 Year
  Sex: Female

DRUGS (6)
  1. CALCIUM                            /00060701/ [Concomitant]
     Active Substance: CALCIUM
     Indication: PRODUCT USED FOR UNKNOWN INDICATION
     Route: 065
  2. ZOCOR [Concomitant]
     Active Substance: SIMVASTATIN
     Indication: PRODUCT USED FOR UNKNOWN INDICATION
     Route: 065
  3. ERBITUX [Suspect]
     Active Substance: CETUXIMAB
     Dosage: 250MG/M WEEKLY
     Route: 065
  4. MAGNESIUM [Concomitant]
     Active Substance: MAGNESIUM
     Indication: PRODUCT USED FOR UNKNOWN INDICATION
     Route: 065
  5. IRON [Concomitant]
     Active Substance: IRON
     Indication: PRODUCT USED FOR UNKNOWN INDICATION
     Route: 065
  6. ERBITUX [Suspect]
     Active Substance: CETUXIMAB
     Indication: LUNG NEOPLASM MALIGNANT
     Dosage: 250MG/M WEEKLY
     Route: 065

REACTIONS (2)
  - Toxic epidermal necrolysis [Unknown]
  - Off label use [Unknown]

NARRATIVE: CASE EVENT DATE: 20150418
